FAERS Safety Report 8000134-9 (Version None)
Quarter: 2011Q4

REPORT INFORMATION
  Report Type: 
  Country: None (occurrence: None)
  Receive Date: 20111220
  Receipt Date: 20111220
  Transmission Date: 20120403
  Serious: No
  Sender: FDA-Public Use
  Company Number: None

PATIENT
  Sex: Male

DRUGS (1)
  1. HCC SOLUTION DIET PLAN [Suspect]

REACTIONS (2)
  - EYE PAIN [None]
  - VISION BLURRED [None]
